FAERS Safety Report 9441777 (Version 1)
Quarter: 2013Q3

REPORT INFORMATION
  Report Type: Spontaneous
  Country: US (occurrence: US)
  Receive Date: 20130806
  Receipt Date: 20130806
  Transmission Date: 20140515
  Serious: Yes (Disabling, Other)
  Sender: FDA-Public Use
  Company Number: US-PFIZER INC-2013227883

PATIENT
  Age: 54 Year
  Sex: Male
  Weight: 68 kg

DRUGS (3)
  1. LYRICA [Suspect]
     Indication: MULTIPLE SCLEROSIS
     Dosage: 75 MG, 1X/DAY
     Dates: start: 2012
  2. LYRICA [Suspect]
     Dosage: 25 MG, 1X/DAY
  3. MORPHINE SULFATE [Concomitant]
     Indication: PAIN
     Dosage: 15 MG, 2X/DAY

REACTIONS (3)
  - Off label use [Unknown]
  - Multiple sclerosis [Unknown]
  - Drug intolerance [Unknown]
